FAERS Safety Report 8310447-9 (Version None)
Quarter: 2012Q2

REPORT INFORMATION
  Report Type: 
  Country: None (occurrence: None)
  Receive Date: 20120425
  Receipt Date: 20120420
  Transmission Date: 20120825
  Serious: Yes (Death)
  Sender: FDA-Public Use
  Company Number: GB-ROCHE-1014749

PATIENT
  Sex: Female

DRUGS (16)
  1. GLUCOSAMINE SULFATE [Concomitant]
  2. MEFENAMIC ACID [Concomitant]
  3. WARFARIN SODIUM [Concomitant]
  4. LUCENTIS [Suspect]
     Indication: PRODUCT USED FOR UNKNOWN INDICATION
     Route: 050
  5. FUROSEMIDE [Concomitant]
  6. LOSARTAN POTASSIUM [Concomitant]
  7. DIGOXIN [Concomitant]
  8. ASPIRIN [Concomitant]
  9. DICLOFENAC SODIUM [Concomitant]
  10. ISPAGHULA HUSK [Concomitant]
  11. OMEPRAZOLE [Concomitant]
  12. ICAPS [Concomitant]
  13. QUININE SULFATE [Concomitant]
  14. DIHYDROCODEINE BITARTRATE INJ [Concomitant]
  15. SIMVASTATIN [Concomitant]
  16. PARACETAMOL [Concomitant]

REACTIONS (1)
  - DEATH [None]
